FAERS Safety Report 7099266-1 (Version None)
Quarter: 2010Q4

REPORT INFORMATION
  Report Type: 
  Country: None (occurrence: None)
  Receive Date: 20101105
  Receipt Date: 20101026
  Transmission Date: 20110411
  Serious: Yes (Hospitalization)
  Sender: FDA-Public Use
  Company Number: 2010MA004005

PATIENT
  Age: 24 Year
  Sex: Male

DRUGS (4)
  1. MIRTAZAPINE [Suspect]
     Dates: start: 20101008
  2. LITHIUM CARBONATE [Suspect]
     Dates: start: 20101008
  3. CLOZAPINE [Suspect]
     Indication: SCHIZOPHRENIA
     Dosage: 250 MG; BID; PO
     Route: 048
     Dates: start: 20100429
  4. CLOZAPINE [Suspect]
     Dosage: 1900 MG
     Dates: start: 20101008

REACTIONS (1)
  - OVERDOSE [None]
